FAERS Safety Report 13805266 (Version 1)
Quarter: 2017Q3

REPORT INFORMATION
  Report Type: Spontaneous
  Country: US (occurrence: US)
  Receive Date: 20170728
  Receipt Date: 20170728
  Transmission Date: 20171127
  Serious: Yes (Hospitalization)
  Sender: FDA-Public Use
  Company Number: None

PATIENT
  Age: 51 Year
  Sex: Female

DRUGS (7)
  1. RECLAST [Suspect]
     Active Substance: ZOLEDRONIC ACID
     Indication: RENAL CANCER
     Dosage: FREQUENCY - Q YEAR
     Route: 042
     Dates: start: 20160308
  2. HUMALOG [Concomitant]
     Active Substance: INSULIN LISPRO
  3. NOVOLOG [Concomitant]
     Active Substance: INSULIN ASPART
  4. METOPROLOL. [Concomitant]
     Active Substance: METOPROLOL
  5. TYLENOL [Concomitant]
     Active Substance: ACETAMINOPHEN
  6. ANTIVERT [Concomitant]
     Active Substance: MECLIZINE HYDROCHLORIDE
  7. BUSPORIN [Concomitant]

REACTIONS (1)
  - Hypersensitivity [None]

NARRATIVE: CASE EVENT DATE: 2017
